FAERS Safety Report 5503410-4 (Version None)
Quarter: 2007Q4

REPORT INFORMATION
  Report Type: 
  Country: None (occurrence: None)
  Receive Date: 20071031
  Receipt Date: 20071019
  Transmission Date: 20080405
  Serious: Yes (Other)
  Sender: FDA-Public Use
  Company Number: GB-PFIZER INC-2007088371

PATIENT
  Sex: Female

DRUGS (1)
  1. CHAMPIX [Suspect]
     Indication: SMOKING CESSATION THERAPY
     Route: 048

REACTIONS (8)
  - DISORIENTATION [None]
  - DYSGEUSIA [None]
  - HEADACHE [None]
  - IMPAIRED DRIVING ABILITY [None]
  - PALPITATIONS [None]
  - POLYURIA [None]
  - RENAL PAIN [None]
  - VISUAL DISTURBANCE [None]
